FAERS Safety Report 24180289 (Version 1)
Quarter: 2024Q3

REPORT INFORMATION
  Report Type: Spontaneous
  Country: CA (occurrence: CA)
  Receive Date: 20240806
  Receipt Date: 20240806
  Transmission Date: 20241016
  Serious: Yes (Hospitalization)
  Sender: AMGEN
  Company Number: CA-AMGEN-CANSP2024151655

PATIENT
  Age: 78 Year
  Sex: Female
  Weight: 61 kg

DRUGS (13)
  1. PROLIA [Suspect]
     Active Substance: DENOSUMAB
     Indication: Product used for unknown indication
     Dosage: 60 MILLIGRAM, Q6MO
     Route: 058
  2. ACETAMINOPHEN [Concomitant]
     Active Substance: ACETAMINOPHEN
  3. CALTRATE [Concomitant]
     Active Substance: CALCIUM CARBONATE
     Dosage: 600 MILLIGRAM
  4. GLUCOSAMINE [Concomitant]
     Active Substance: GLUCOSAMINE
  5. LEUCOVORIN [Concomitant]
     Active Substance: LEUCOVORIN\LEUCOVORIN CALCIUM
  6. OMEGA 3 [Concomitant]
     Active Substance: CAPSAICIN
  7. OMNARIS [Concomitant]
     Active Substance: CICLESONIDE
  8. PERINDOPRIL [Concomitant]
     Active Substance: PERINDOPRIL
  9. RINVOQ [Concomitant]
     Active Substance: UPADACITINIB
  10. ROSUVASTATIN [Concomitant]
     Active Substance: ROSUVASTATIN\ROSUVASTATIN CALCIUM
  11. TAMOXIFEN [Concomitant]
     Active Substance: TAMOXIFEN
  12. VITAMIN D [Concomitant]
     Active Substance: VITAMIN D NOS
  13. METHOTREXATE [Concomitant]
     Active Substance: METHOTREXATE
     Route: 058

REACTIONS (1)
  - Bradycardia [Recovering/Resolving]
